FAERS Safety Report 6691950-4 (Version None)
Quarter: 2010Q2

REPORT INFORMATION
  Report Type: 
  Country: None (occurrence: None)
  Receive Date: 20100422
  Receipt Date: 20090605
  Transmission Date: 20101027
  Serious: No
  Sender: FDA-Public Use
  Company Number: US-ASTRAZENECA-2003UW05733

PATIENT
  Age: 72 Year
  Sex: Female
  Weight: 50.8 kg

DRUGS (13)
  1. TOPROL-XL [Suspect]
     Indication: PALPITATIONS
     Dosage: 12.5 - 25 MG
     Route: 048
     Dates: start: 20070101
  2. TOPROL-XL [Suspect]
     Indication: HYPERTENSION
     Dosage: 12.5 - 25 MG
     Route: 048
     Dates: start: 20070101
  3. TOPROL-XL [Suspect]
     Indication: CARDIAC FAILURE
     Dosage: 12.5 - 25 MG
     Route: 048
     Dates: start: 20070101
  4. TOPROL-XL [Suspect]
     Indication: HEART RATE INCREASED
     Dosage: 12.5 - 25 MG
     Route: 048
     Dates: start: 20070101
  5. TOPROL-XL [Suspect]
     Route: 048
     Dates: start: 20050101
  6. TOPROL-XL [Suspect]
     Route: 048
     Dates: start: 20050101
  7. TOPROL-XL [Suspect]
     Route: 048
     Dates: start: 20050101
  8. TOPROL-XL [Suspect]
     Route: 048
     Dates: start: 20050101
  9. TOPROL-XL [Suspect]
     Route: 048
     Dates: start: 20010101
  10. TOPROL-XL [Suspect]
     Route: 048
     Dates: start: 20010101
  11. TOPROL-XL [Suspect]
     Route: 048
     Dates: start: 20010101
  12. TOPROL-XL [Suspect]
     Route: 048
     Dates: start: 20010101
  13. VITAMIN D [Concomitant]

REACTIONS (10)
  - AMNESIA [None]
  - ASTHENIA [None]
  - DEPRESSION [None]
  - FEELING COLD [None]
  - HYPOAESTHESIA [None]
  - HYPOTENSION [None]
  - ILL-DEFINED DISORDER [None]
  - NASOPHARYNGITIS [None]
  - PYREXIA [None]
  - SYNCOPE [None]
